FAERS Safety Report 5303312-2 (Version None)
Quarter: 2007Q2

REPORT INFORMATION
  Report Type: 
  Country: None (occurrence: None)
  Receive Date: 20070420
  Receipt Date: 20070419
  Transmission Date: 20071010
  Serious: Yes (Life-Threatening)
  Sender: FDA-Public Use
  Company Number: JP-JPN-A200701797

PATIENT
  Age: 9 Month
  Sex: Male
  Weight: 7.3 kg

DRUGS (10)
  1. ALKERAN [Suspect]
     Indication: STEM CELL TRANSPLANT
     Dosage: 29.5MG PER DAY
     Route: 042
     Dates: start: 20050502, end: 20050510
  2. THIOTEPA [Suspect]
     Indication: STEM CELL TRANSPLANT
     Dosage: 6.5MGK PER DAY
     Dates: start: 20050502, end: 20050510
  3. GRAN [Concomitant]
     Dates: start: 20050515, end: 20050525
  4. PHENOBARBITAL TAB [Concomitant]
     Route: 048
     Dates: start: 20050425
  5. POLYMYXIN B SULFATE [Concomitant]
     Route: 048
     Dates: start: 20050429, end: 20050526
  6. DIFLUCAN [Concomitant]
     Route: 048
     Dates: start: 20050429, end: 20050526
  7. BAKTAR [Concomitant]
     Route: 048
     Dates: start: 20050429, end: 20050512
  8. BAKTAR [Concomitant]
     Route: 048
     Dates: start: 20050601
  9. ZOVIRAX [Concomitant]
     Route: 048
     Dates: start: 20050509, end: 20050617
  10. KYTRIL [Concomitant]
     Route: 042
     Dates: start: 20050502, end: 20050510

REACTIONS (2)
  - PYREXIA [None]
  - SEPSIS [None]
